FAERS Safety Report 7703311-7 (Version None)
Quarter: 2011Q3

REPORT INFORMATION
  Report Type: 
  Country: None (occurrence: None)
  Receive Date: 20110823
  Receipt Date: 20110811
  Transmission Date: 20111222
  Serious: Yes (Congenital Anomaly, Other)
  Sender: FDA-Public Use
  Company Number: FR-ELI_LILLY_AND_COMPANY-FR201108003729

PATIENT
  Weight: 3.05 kg

DRUGS (14)
  1. COZAAR [Concomitant]
     Dosage: UNK
     Route: 064
     Dates: end: 20110328
  2. LEVOTHYROXINE SODIUM [Concomitant]
     Route: 064
  3. COZAAR [Concomitant]
     Dosage: UNK
     Route: 064
     Dates: end: 20110328
  4. LEVOTHYROXINE SODIUM [Concomitant]
     Route: 064
  5. CYMBALTA [Suspect]
     Dosage: 30 MG, QD
     Route: 064
     Dates: end: 20110328
  6. INSULIN [Concomitant]
     Route: 064
  7. CYMBALTA [Suspect]
     Dosage: 30 MG, QD
     Route: 064
     Dates: end: 20110328
  8. CYMBALTA [Suspect]
     Dosage: 60 MG, QD
     Route: 064
  9. METFORMIN HCL [Concomitant]
     Dosage: UNK
     Route: 064
     Dates: end: 20110328
  10. METFORMIN HCL [Concomitant]
     Dosage: UNK
     Route: 064
     Dates: end: 20110328
  11. SITAGLIPTIN PHOSPHATE [Concomitant]
     Dosage: UNK
     Route: 064
     Dates: end: 20110328
  12. INSULIN [Concomitant]
     Route: 064
  13. CYMBALTA [Suspect]
     Dosage: 60 MG, QD
     Route: 064
  14. SITAGLIPTIN PHOSPHATE [Concomitant]
     Dosage: UNK
     Route: 064
     Dates: end: 20110328

REACTIONS (5)
  - MATERNAL EXPOSURE DURING PREGNANCY [None]
  - POLYDACTYLY [None]
  - JOINT LAXITY [None]
  - ANOMALY OF EXTERNAL EAR CONGENITAL [None]
  - MICROPHTHALMOS [None]
